FAERS Safety Report 4444154-X (Version None)
Quarter: 2004Q3

REPORT INFORMATION
  Report Type: 
  Country: None (occurrence: None)
  Receive Date: 20040902
  Receipt Date: 20040813
  Transmission Date: 20050211
  Serious: Yes (Other)
  Sender: FDA-Public Use
  Company Number: US_011177020

PATIENT
  Age: 69 Year
  Sex: Female
  Weight: 71 kg

DRUGS (5)
  1. HUMULIN N [Suspect]
     Indication: DIABETES MELLITUS
     Dosage: 22 U DAY
     Dates: start: 20000301
  2. HUMULIN R [Suspect]
     Indication: DIABETES MELLITUS
     Dosage: 2 U/2 DAY
     Dates: start: 20000301
  3. NPH ILETIN I (BEEF-PORK) [Suspect]
     Indication: DIABETES MELLITUS
     Dates: end: 20000301
  4. INSULIN [Suspect]
     Indication: DIABETES MELLITUS INSULIN-DEPENDENT
     Dates: start: 19640101
  5. LEVOXYL [Concomitant]

REACTIONS (20)
  - BLOOD GLUCOSE DECREASED [None]
  - BLOOD GLUCOSE FLUCTUATION [None]
  - BLOOD GLUCOSE INCREASED [None]
  - BUNION [None]
  - CATARACT [None]
  - DRUG EFFECT DECREASED [None]
  - DRUG INEFFECTIVE [None]
  - DYSPNOEA [None]
  - EYE DISORDER [None]
  - FEAR [None]
  - HEADACHE [None]
  - HYPOTENSION [None]
  - PHARMACEUTICAL PRODUCT COMPLAINT [None]
  - RETINAL HAEMORRHAGE [None]
  - RETINOPATHY [None]
  - THYROID DISORDER [None]
  - TOE DEFORMITY [None]
  - VIRAL INFECTION [None]
  - VISION BLURRED [None]
  - WEIGHT INCREASED [None]
